FAERS Safety Report 7943118-9 (Version None)
Quarter: 2011Q4

REPORT INFORMATION
  Report Type: 
  Country: None (occurrence: None)
  Receive Date: 20111128
  Receipt Date: 20111114
  Transmission Date: 20120403
  Serious: Yes (Other)
  Sender: FDA-Public Use
  Company Number: PHHY2011JP101509

PATIENT

DRUGS (2)
  1. LOXONIN [Suspect]
     Dosage: 75 LOXONIN 60MG TABLETS (TOTAL 4500 MG)
     Route: 048
  2. VOLTAREN [Suspect]
     Dosage: 900 MG, QD, TOOK 36 VOLTAREN 25 MG TABLETS
     Route: 048

REACTIONS (1)
  - OVERDOSE [None]
